FAERS Safety Report 9758072 (Version 1)
Quarter: 2013Q4

REPORT INFORMATION
  Report Type: Spontaneous
  Country: US (occurrence: None)
  Receive Date: 20131213
  Receipt Date: 20131213
  Transmission Date: 20140711
  Serious: No
  Sender: FDA-Public Use
  Company Number: None

PATIENT
  Age: 40 Year
  Sex: Male
  Weight: 79.38 kg

DRUGS (1)
  1. NORCO(GENERIC) [Suspect]
     Indication: TEMPOROMANDIBULAR JOINT SYNDROME
     Dosage: 2 PILLS THREE TIMES DAILY TAKEN BY MOUTH
     Route: 048
     Dates: start: 20131208, end: 20131211

REACTIONS (6)
  - Product substitution issue [None]
  - Product quality issue [None]
  - Diplopia [None]
  - Mental disorder [None]
  - Thinking abnormal [None]
  - Loss of consciousness [None]
